FAERS Safety Report 24178722 (Version 2)
Quarter: 2024Q3

REPORT INFORMATION
  Report Type: Spontaneous
  Country: JP (occurrence: JP)
  Receive Date: 20240806
  Receipt Date: 20240913
  Transmission Date: 20241016
  Serious: Yes (Other)
  Sender: PFIZER
  Company Number: JP-PFIZER INC-202400226890

PATIENT
  Age: 74 Year
  Sex: Female

DRUGS (1)
  1. ELREXFIO [Suspect]
     Active Substance: ELRANATAMAB-BCMM
     Indication: Plasma cell myeloma
     Dosage: DOSE 1
     Dates: start: 202407, end: 202407

REACTIONS (1)
  - Tumour flare [Unknown]

NARRATIVE: CASE EVENT DATE: 20240701
